FAERS Safety Report 7934113-4 (Version None)
Quarter: 2011Q4

REPORT INFORMATION
  Report Type: 
  Country: None (occurrence: None)
  Receive Date: 20111122
  Receipt Date: 20111109
  Transmission Date: 20120403
  Serious: Yes (Other)
  Sender: FDA-Public Use
  Company Number: DE-MYLANLABS-2011S1022289

PATIENT
  Sex: Female
  Weight: 64 kg

DRUGS (2)
  1. METOPROLOL TARTRATE [Suspect]
     Indication: PRODUCT USED FOR UNKNOWN INDICATION
     Route: 048
  2. DOXEPIN HCL [Suspect]
     Indication: DEPRESSION
     Route: 048
     Dates: start: 19990101

REACTIONS (1)
  - NEUROPATHY PERIPHERAL [None]
